FAERS Safety Report 13598190 (Version 1)
Quarter: 2017Q2

REPORT INFORMATION
  Report Type: Report from Study
  Country: BR (occurrence: BR)
  Receive Date: 20170531
  Receipt Date: 20170531
  Transmission Date: 20170830
  Serious: Yes (Other)
  Sender: FDA-Public Use
  Company Number: PHHY2017BR077569

PATIENT
  Sex: Female
  Weight: 58 kg

DRUGS (1)
  1. EXFORGE HCT [Suspect]
     Active Substance: AMLODIPINE BESYLATE\HYDROCHLOROTHIAZIDE\VALSARTAN
     Indication: HYPERTENSION
     Dosage: 1 DF (AMLODIPINE 10MG, HYDROCHLOROTHIAZIDE 25MG AND VALSARTAN320 MG), QD
     Route: 048

REACTIONS (7)
  - Influenza [Unknown]
  - Glaucoma [Unknown]
  - Visual impairment [Recovering/Resolving]
  - Depression [Recovering/Resolving]
  - Viral upper respiratory tract infection [Recovering/Resolving]
  - Product colour issue [Unknown]
  - Diplopia [Recovering/Resolving]
